FAERS Safety Report 12431549 (Version 1)
Quarter: 2016Q2

REPORT INFORMATION
  Report Type: Spontaneous
  Country: US (occurrence: None)
  Receive Date: 20160602
  Receipt Date: 20160602
  Transmission Date: 20160815
  Serious: Yes (Hospitalization)
  Sender: FDA-Public Use
  Company Number: None

PATIENT
  Age: 64 Year
  Sex: Male

DRUGS (9)
  1. LEVOTHYROXINE. [Suspect]
     Active Substance: LEVOTHYROXINE
  2. JANTOVEN [Concomitant]
     Active Substance: WARFARIN SODIUM
  3. DILTIAZEM [Concomitant]
     Active Substance: DILTIAZEM
  4. VITAMIN D3 [Concomitant]
     Active Substance: CHOLECALCIFEROL
  5. CLONIDINE. [Concomitant]
     Active Substance: CLONIDINE
  6. FUROSEMIDE. [Concomitant]
     Active Substance: FUROSEMIDE
  7. VIGABLINE [Concomitant]
  8. SAXENDA [Suspect]
     Active Substance: LIRAGLUTIDE
     Indication: WEIGHT DECREASED
     Route: 058
     Dates: start: 201510, end: 20160510
  9. SAXENDA [Suspect]
     Active Substance: LIRAGLUTIDE
     Indication: DIABETES INSIPIDUS
     Route: 058
     Dates: start: 201510, end: 20160510

REACTIONS (1)
  - Abdominal pain [None]

NARRATIVE: CASE EVENT DATE: 201604
